FAERS Safety Report 14993807 (Version 1)
Quarter: 2018Q2

REPORT INFORMATION
  Report Type: Spontaneous
  Country: DE (occurrence: DE)
  Receive Date: 20180611
  Receipt Date: 20180611
  Transmission Date: 20180711
  Serious: Yes (Hospitalization)
  Sender: FDA-Public Use
  Company Number: DE-TEVA-2018-DE-902450

PATIENT
  Age: 74 Year
  Sex: Male
  Weight: 131 kg

DRUGS (8)
  1. TORASEMIDE [Suspect]
     Active Substance: TORSEMIDE
     Route: 065
  2. XIPAMIDE [Suspect]
     Active Substance: XIPAMIDE
     Route: 065
  3. MOXONIDINE [Suspect]
     Active Substance: MOXONIDINE
     Route: 065
  4. ACETYLSALICYLSAEURE [Concomitant]
     Active Substance: ASPIRIN
  5. METOPROLOL. [Suspect]
     Active Substance: METOPROLOL
     Route: 065
  6. RAMIPRIL. [Suspect]
     Active Substance: RAMIPRIL
     Route: 065
  7. ALLOPURINOL. [Concomitant]
     Active Substance: ALLOPURINOL
  8. NIFEDIPINE. [Concomitant]
     Active Substance: NIFEDIPINE

REACTIONS (3)
  - Balance disorder [Unknown]
  - Gait disturbance [Unknown]
  - Dizziness [Unknown]
